FAERS Safety Report 4494470-0 (Version None)
Quarter: 2004Q4

REPORT INFORMATION
  Report Type: 
  Country: None (occurrence: None)
  Receive Date: 20041102
  Receipt Date: 20041020
  Transmission Date: 20050328
  Serious: Yes (Other)
  Sender: FDA-Public Use
  Company Number: 2004240415FR

PATIENT
  Age: 65 Year
  Sex: Female

DRUGS (4)
  1. CELEBREX [Suspect]
     Indication: OSTEOARTHRITIS
     Dosage: 200 MG, QD, ORAL
     Route: 048
     Dates: start: 20030901
  2. PRAVASTATIN [Concomitant]
  3. CHONDROSULF (CHONDROITIN SULFATE SODIUM) [Suspect]
  4. OGAST [Concomitant]

REACTIONS (1)
  - ARRHYTHMIA [None]
